FAERS Safety Report 5684330-1 (Version None)
Quarter: 2008Q1

REPORT INFORMATION
  Report Type: 
  Country: None (occurrence: None)
  Receive Date: 20080328
  Receipt Date: 20080314
  Transmission Date: 20080703
  Serious: Yes (Hospitalization, Disabling)
  Sender: FDA-Public Use
  Company Number: B0398573A

PATIENT
  Age: 36 Year
  Sex: Male

DRUGS (19)
  1. EPIVIR [Suspect]
     Indication: HIV INFECTION
     Route: 048
     Dates: start: 20010806
  2. ZIAGEN [Suspect]
     Indication: HIV INFECTION
     Route: 048
     Dates: start: 20010122
  3. KALETRA [Suspect]
     Indication: HIV INFECTION
     Dosage: 6CAP PER DAY
     Route: 048
     Dates: start: 20011022, end: 20040924
  4. ATAZANAVIR SULFATE [Suspect]
     Indication: HIV INFECTION
     Route: 048
     Dates: start: 20040116
  5. TENOFOVIR DISOPROXIL FUMARATE [Suspect]
     Indication: HIV INFECTION
     Dosage: 300MG PER DAY
     Route: 048
     Dates: start: 20020401, end: 20040113
  6. RIBAVIRIN [Suspect]
     Route: 048
  7. INTRON A [Suspect]
     Route: 030
     Dates: start: 20041227
  8. VIRAMUNE [Suspect]
     Indication: ACQUIRED IMMUNODEFICIENCY SYNDROME
     Dosage: 200MG PER DAY
     Route: 048
     Dates: start: 20040116, end: 20040914
  9. RETROVIR [Suspect]
     Indication: ACQUIRED IMMUNODEFICIENCY SYNDROME
     Route: 048
     Dates: start: 20050613, end: 20051110
  10. VIDEX EC [Suspect]
     Indication: ACQUIRED IMMUNODEFICIENCY SYNDROME
     Dosage: 250MG PER DAY
     Route: 048
     Dates: start: 20050613, end: 20050827
  11. ZERIT [Suspect]
     Indication: ACQUIRED IMMUNODEFICIENCY SYNDROME
     Route: 048
     Dates: start: 20051111
  12. VIRACEPT [Concomitant]
     Indication: HIV INFECTION
     Route: 048
     Dates: start: 20040927
  13. DIFLUCAN [Concomitant]
     Indication: ORAL CANDIDIASIS
     Dosage: 100MG PER DAY
     Route: 065
     Dates: start: 20030401, end: 20050406
  14. LOXONIN [Concomitant]
     Indication: PAIN IN EXTREMITY
     Dosage: 60MG PER DAY
     Route: 048
     Dates: start: 20030401
  15. URINORM [Concomitant]
     Dosage: 50MG PER DAY
     Route: 048
     Dates: start: 20050328
  16. NORVIR [Concomitant]
     Indication: ACQUIRED IMMUNODEFICIENCY SYNDROME
     Route: 048
     Dates: start: 20050216, end: 20050608
  17. STOCRIN [Concomitant]
     Indication: ACQUIRED IMMUNODEFICIENCY SYNDROME
     Route: 048
     Dates: start: 20050216, end: 20050829
  18. EPZICOM [Concomitant]
     Indication: ACQUIRED IMMUNODEFICIENCY SYNDROME
     Route: 048
     Dates: start: 20050216, end: 20050317
  19. NOVACT M [Concomitant]
     Indication: FACTOR IX DEFICIENCY
     Dates: start: 20060401

REACTIONS (20)
  - ABDOMINAL PAIN [None]
  - COUGH [None]
  - DIARRHOEA [None]
  - DYSPNOEA [None]
  - HYPERURICAEMIA [None]
  - HYPOAESTHESIA [None]
  - HYPOALBUMINAEMIA [None]
  - METABOLIC ACIDOSIS [None]
  - NEPHRITIS INTERSTITIAL [None]
  - NEPHROPATHY [None]
  - NEPHROTIC SYNDROME [None]
  - NEUROPATHY PERIPHERAL [None]
  - OEDEMA PERIPHERAL [None]
  - PAIN [None]
  - PAIN IN EXTREMITY [None]
  - PRODUCTIVE COUGH [None]
  - PROTEIN URINE PRESENT [None]
  - RENAL HYPERTROPHY [None]
  - RENAL IMPAIRMENT [None]
  - RENAL TUBULAR DISORDER [None]
